FAERS Safety Report 5659981-0 (Version None)
Quarter: 2008Q1

REPORT INFORMATION
  Report Type: 
  Country: None (occurrence: None)
  Receive Date: 20080311
  Receipt Date: 20080304
  Transmission Date: 20080703
  Serious: No
  Sender: FDA-Public Use
  Company Number: US-BAXTER-2008BH002045

PATIENT
  Age: 69 Year
  Sex: Male
  Weight: 106 kg

DRUGS (16)
  1. HEPARIN SODIUM [Suspect]
     Indication: PROPHYLAXIS
     Dosage: DOSE UNIT:UNKNOWN
     Route: 033
  2. SPIRONOLACTONE [Concomitant]
     Indication: POLYURIA
     Route: 048
     Dates: start: 20071001
  3. SERTRALINE [Concomitant]
     Indication: ANXIETY
     Route: 048
  4. ALLOPURINOL [Concomitant]
     Indication: GOUT
     Route: 048
  5. CALCITRIOL [Concomitant]
     Indication: BLOOD CALCIUM DECREASED
     Route: 048
  6. METOPROLOL TARTRATE [Concomitant]
     Indication: CARDIAC DISORDER
     Route: 048
  7. LISINOPRIL [Concomitant]
     Indication: CARDIAC DISORDER
     Route: 048
     Dates: start: 20071001
  8. PRENAVITE [Concomitant]
     Indication: DIALYSIS
     Route: 048
  9. LIPITOR [Concomitant]
     Indication: CARDIAC DISORDER
     Route: 048
  10. POLY-IRON [Concomitant]
     Indication: MINERAL SUPPLEMENTATION
     Dosage: DOSE UNIT:UNKNOWN
     Route: 048
     Dates: start: 20071001
  11. PHOSLO [Concomitant]
     Indication: DIALYSIS
     Dosage: DOSE UNIT:UNKNOWN
     Route: 048
  12. LORAZEPAM [Concomitant]
     Indication: SEDATIVE THERAPY
     Route: 048
  13. HYDRALAZINE HCL [Concomitant]
     Indication: BLOOD PRESSURE INCREASED
     Route: 048
     Dates: end: 20080101
  14. FUROSEMIDE [Concomitant]
     Indication: DIURETIC THERAPY
     Route: 048
  15. ISOSORBIDE DINITRATE [Concomitant]
     Indication: CARDIAC DISORDER
     Route: 048
  16. PANTOPRAZOLE [Concomitant]
     Indication: EPIGASTRIC DISCOMFORT
     Route: 048

REACTIONS (5)
  - ABDOMINAL PAIN [None]
  - HYPERHIDROSIS [None]
  - LOSS OF CONSCIOUSNESS [None]
  - PERITONEAL DIALYSIS COMPLICATION [None]
  - SWELLING [None]
